FAERS Safety Report 5733581-6 (Version None)
Quarter: 2008Q2

REPORT INFORMATION
  Report Type: 
  Country: None (occurrence: None)
  Receive Date: 20080509
  Receipt Date: 20080501
  Transmission Date: 20081010
  Serious: Yes (Hospitalization, Other)
  Sender: FDA-Public Use
  Company Number: US-JNJFOC-20080305337

PATIENT
  Sex: Female

DRUGS (2)
  1. TOPAMAX [Suspect]
  2. TOPAMAX [Suspect]
     Indication: MIGRAINE PROPHYLAXIS
     Dosage: 50 MG IN AM, 100 MG IN PM

REACTIONS (3)
  - METAMORPHOPSIA [None]
  - RETINAL DETACHMENT [None]
  - RETINAL PIGMENT EPITHELIOPATHY [None]
